FAERS Safety Report 11193902 (Version 1)
Quarter: 2015Q2

REPORT INFORMATION
  Report Type: Spontaneous
  Country: US (occurrence: US)
  Receive Date: 20150616
  Receipt Date: 20150616
  Transmission Date: 20150821
  Serious: No
  Sender: FDA-Public Use
  Company Number: US-TAKEDA-2014MPI002725

PATIENT
  Age: 57 Year
  Sex: Female

DRUGS (2)
  1. VELCADE [Suspect]
     Active Substance: BORTEZOMIB
     Indication: AMYLOIDOSIS
     Dosage: UNK UNK, 1/WEEK
     Route: 058
     Dates: start: 201205
  2. VELCADE [Suspect]
     Active Substance: BORTEZOMIB
     Dosage: 2.5 MG, EVERY OTHER WEEK
     Route: 058

REACTIONS (2)
  - Product solubility abnormal [Unknown]
  - No adverse event [Unknown]
